FAERS Safety Report 25874669 (Version 2)
Quarter: 2025Q4

REPORT INFORMATION
  Report Type: Spontaneous
  Country: US (occurrence: US)
  Receive Date: 20251002
  Receipt Date: 20251125
  Transmission Date: 20260118
  Serious: No
  Sender: PFIZER
  Company Number: US-PFIZER INC-202500195539

PATIENT
  Age: 14 Year
  Sex: Male
  Weight: 44 kg

DRUGS (2)
  1. GENOTROPIN [Suspect]
     Active Substance: SOMATROPIN
     Indication: Growth hormone deficiency
     Dosage: 1.4 MG, 1X/DAY
     Route: 058
     Dates: start: 202503
  2. HIZENTRA [Concomitant]
     Active Substance: HUMAN IMMUNOGLOBULIN G
     Indication: Hypogammaglobulinaemia
     Dosage: 8GM/20%, EVERY 10 DAYS
     Route: 058

REACTIONS (2)
  - Drug dose omission by device [Not Recovered/Not Resolved]
  - Device information output issue [Unknown]

NARRATIVE: CASE EVENT DATE: 20250930
